FAERS Safety Report 20055196 (Version 2)
Quarter: 2021Q4

REPORT INFORMATION
  Report Type: Spontaneous
  Country: CA (occurrence: CA)
  Receive Date: 20211110
  Receipt Date: 20211111
  Transmission Date: 20220303
  Serious: Yes (Hospitalization, Other)
  Sender: FDA-Public Use
  Company Number: CA-PFIZER INC-202101520761

PATIENT
  Age: 36 Year
  Sex: Male
  Weight: 56.689 kg

DRUGS (1)
  1. METHOTREXATE SODIUM [Suspect]
     Active Substance: METHOTREXATE SODIUM
     Dosage: UNK

REACTIONS (4)
  - Crohn^s disease [Unknown]
  - Anal abscess [Unknown]
  - Haemangioma of liver [Unknown]
  - Tuberculosis [Unknown]
